FAERS Safety Report 16054707 (Version 1)
Quarter: 2019Q1

REPORT INFORMATION
  Report Type: Spontaneous
  Country: CH (occurrence: CH)
  Receive Date: 20190309
  Receipt Date: 20190309
  Transmission Date: 20190418
  Serious: Yes (Other)
  Sender: FDA-Public Use
  Company Number: PHHY2019CH049259

PATIENT
  Age: 71 Year
  Sex: Male

DRUGS (1)
  1. COSENTYX [Suspect]
     Active Substance: SECUKINUMAB
     Indication: AXIAL SPONDYLOARTHRITIS
     Dosage: 150 MG, Q4W
     Route: 065
     Dates: end: 20181215

REACTIONS (1)
  - Non-Hodgkin^s lymphoma [Not Recovered/Not Resolved]

NARRATIVE: CASE EVENT DATE: 20181215
